FAERS Safety Report 6111905-8 (Version None)
Quarter: 2009Q1

REPORT INFORMATION
  Report Type: 
  Country: None (occurrence: None)
  Receive Date: 20090311
  Receipt Date: 20090227
  Transmission Date: 20090719
  Serious: Yes (Life-Threatening, Hospitalization, Disabling)
  Sender: FDA-Public Use
  Company Number: US-SANOFI-SYNTHELABO-A03200603398

PATIENT
  Sex: Male
  Weight: 65.8 kg

DRUGS (10)
  1. AMBIEN [Suspect]
     Indication: INSOMNIA
     Dosage: ONE OR TWO 5 MG TABLETS/10 MG TABLETS
     Route: 048
     Dates: start: 20030101, end: 20050601
  2. FLONASE [Concomitant]
     Indication: DRUG USE FOR UNKNOWN INDICATION
     Dosage: 2 SPRAYS TO EACH NOSTRIL DAILY
     Route: 045
  3. BENADRYL [Concomitant]
     Indication: INSOMNIA
     Dosage: 50 MG H.S. PRN FOR INSOMNIA
     Route: 048
  4. SUSTIVA [Concomitant]
     Indication: DRUG USE FOR UNKNOWN INDICATION
     Route: 048
  5. VIDEX EC [Concomitant]
     Indication: DRUG USE FOR UNKNOWN INDICATION
     Route: 048
  6. RETROVIR [Concomitant]
     Indication: DRUG USE FOR UNKNOWN INDICATION
     Route: 048
  7. HYDROCODONE BITARTRATE + ACETAMINOPHEN [Concomitant]
     Indication: DRUG USE FOR UNKNOWN INDICATION
     Dosage: 5/500
     Route: 065
  8. NORVIR [Concomitant]
     Indication: DRUG USE FOR UNKNOWN INDICATION
     Route: 065
  9. ALCOHOL [Suspect]
     Dosage: 12 OUNCES
     Route: 065
  10. REMERON [Suspect]
     Indication: DEPRESSION
     Dosage: UNK
     Route: 065

REACTIONS (10)
  - BALANCE DISORDER [None]
  - DEPRESSION [None]
  - DYSARTHRIA [None]
  - IMPAIRED DRIVING ABILITY [None]
  - LACRIMATION INCREASED [None]
  - MEMORY IMPAIRMENT [None]
  - OCULAR HYPERAEMIA [None]
  - ROAD TRAFFIC ACCIDENT [None]
  - SOMNAMBULISM [None]
  - SPINAL X-RAY ABNORMAL [None]
